FAERS Safety Report 11839047 (Version 1)
Quarter: 2015Q4

REPORT INFORMATION
  Report Type: Spontaneous
  Country: FR (occurrence: FR)
  Receive Date: 20151216
  Receipt Date: 20151216
  Transmission Date: 20160305
  Serious: Yes (Hospitalization)
  Sender: FDA-Public Use
  Company Number: FR-009507513-1512FRA006049

PATIENT
  Age: 30 Year
  Sex: Female

DRUGS (7)
  1. ASPEGIC [Concomitant]
     Active Substance: ASPIRIN DL-LYSINE
     Indication: IMMUNE THROMBOCYTOPENIC PURPURA
     Dosage: UNK
  2. THIOPENTAL SODIUM. [Suspect]
     Active Substance: THIOPENTAL SODIUM
     Indication: ANAESTHESIA
     Dosage: 500 MG, ONCE
     Route: 042
     Dates: start: 20150604, end: 20150604
  3. SUFENTANIL [Suspect]
     Active Substance: SUFENTANIL
     Indication: ANAESTHESIA
     Dosage: 20 G, ONCE
     Route: 042
     Dates: start: 20150604, end: 20150604
  4. ESMERON [Suspect]
     Active Substance: ROCURONIUM BROMIDE
     Indication: ANAESTHESIA
     Dosage: 30 MG, ONCE
     Route: 042
     Dates: start: 20150604, end: 20150604
  5. CELOCURINE [Suspect]
     Active Substance: SUCCINYLCHOLINE CHLORIDE
     Indication: ANAESTHESIA
     Dosage: 100 MG, ONCE
     Route: 042
     Dates: start: 20150604, end: 20150604
  6. CEFAZOLINE PANPHARMA [Suspect]
     Active Substance: CEFAZOLIN SODIUM
     Indication: ANTIBIOTIC PROPHYLAXIS
     Dosage: 1.5 G, ONCE
     Route: 042
     Dates: start: 20150604, end: 20150604
  7. RHOPHYLAC [Suspect]
     Active Substance: HUMAN RHO(D) IMMUNE GLOBULIN
     Indication: ALLOIMMUNISATION
     Dosage: 200 MICROGRAM, QD
     Route: 042
     Dates: start: 20150603

REACTIONS (4)
  - Hypotension [Recovered/Resolved]
  - Oxygen saturation decreased [Recovered/Resolved]
  - Hypocapnia [Recovered/Resolved]
  - Tachycardia [Recovered/Resolved]

NARRATIVE: CASE EVENT DATE: 20150604
